FAERS Safety Report 7991514 (Version 5)
Quarter: 2013Q1

REPORT INFORMATION
  Report Type: Report from Study
  Country: CH (occurrence: CH)
  Receive Date: 20110615
  Receipt Date: 20130215
  Transmission Date: 20140127
  Serious: Yes (Life-Threatening, Hospitalization)
  Sender: FDA-Public Use
  Company Number: CH-JNJFOC-20110604154

PATIENT
  Age: 70 Year
  Sex: Male
  Weight: 81 kg

DRUGS (8)
  1. ABIRATERONE ACETATE [Suspect]
     Route: 048
  2. ABIRATERONE ACETATE [Suspect]
     Indication: PROSTATE CANCER METASTATIC
     Route: 048
     Dates: start: 20110415
  3. PREDNISONE [Suspect]
     Indication: PROSTATE CANCER METASTATIC
  4. PREDNISONE [Suspect]
     Indication: PROSTATE CANCER METASTATIC
     Dates: start: 20110609, end: 20110615
  5. TRANSTEC [Concomitant]
     Indication: PAIN
     Dosage: DOSE: 1/4
     Route: 062
     Dates: start: 20110525
  6. NEXIUM [Concomitant]
     Indication: DYSPEPSIA
     Route: 048
     Dates: start: 20110107
  7. NEXIUM [Concomitant]
     Indication: GASTRITIS
     Route: 048
     Dates: start: 20110107
  8. INSPRA [Concomitant]
     Indication: OEDEMA
     Route: 048
     Dates: start: 20110421

REACTIONS (3)
  - Pulmonary embolism [Recovered/Resolved]
  - Dyspnoea [Recovered/Resolved]
  - Syncope [Recovered/Resolved]
